FAERS Safety Report 17907805 (Version 1)
Quarter: 2020Q2

REPORT INFORMATION
  Report Type: Spontaneous
  Country: US (occurrence: US)
  Receive Date: 20200617
  Receipt Date: 20200617
  Transmission Date: 20200714
  Serious: No
  Sender: FDA-Public Use
  Company Number: None

PATIENT
  Age: 41 Year
  Sex: Male
  Weight: 109.4 kg

DRUGS (1)
  1. ENTYVIO [Suspect]
     Active Substance: VEDOLIZUMAB
     Indication: COLITIS ULCERATIVE
     Dosage: ?          OTHER FREQUENCY:EVERY 2 WEEKS X2;?
     Route: 041
     Dates: start: 20200609

REACTIONS (3)
  - Therapy change [None]
  - Dyspepsia [None]
  - Infusion related reaction [None]

NARRATIVE: CASE EVENT DATE: 20200609
